FAERS Safety Report 20682384 (Version 1)
Quarter: 2022Q2

REPORT INFORMATION
  Report Type: Spontaneous
  Country: US (occurrence: US)
  Receive Date: 20220407
  Receipt Date: 20220407
  Transmission Date: 20220721
  Serious: No
  Sender: FDA-Public Use
  Company Number: US-CELGENE-USA-20220206899

PATIENT
  Age: 84 Year
  Sex: Male
  Weight: 63.5 kg

DRUGS (1)
  1. REVLIMID [Suspect]
     Active Substance: LENALIDOMIDE
     Indication: Plasma cell myeloma
     Dosage: 10 MILLIGRAM
     Route: 048
     Dates: start: 20220126

REACTIONS (4)
  - Dry skin [Unknown]
  - Dysgeusia [Unknown]
  - Fatigue [Unknown]
  - Dysphonia [Unknown]

NARRATIVE: CASE EVENT DATE: 20220101
